FAERS Safety Report 12770742 (Version 1)
Quarter: 2016Q3

REPORT INFORMATION
  Report Type: Spontaneous
  Country: US (occurrence: US)
  Receive Date: 20160922
  Receipt Date: 20160922
  Transmission Date: 20161109
  Serious: Yes (Other)
  Sender: FDA-Public Use
  Company Number: US-PFIZER INC-2016437978

PATIENT
  Age: 69 Year
  Sex: Male
  Weight: 94.79 kg

DRUGS (24)
  1. CAVERJECT [Suspect]
     Active Substance: ALPROSTADIL
     Dosage: 40 UG, UNK
  2. LIDOCAINE. [Concomitant]
     Active Substance: LIDOCAINE
     Dosage: UNK
     Dates: start: 20141124
  3. SIMVASTATIN. [Concomitant]
     Active Substance: SIMVASTATIN
     Dosage: 20 MG, DAILY (BEDTIME)
     Dates: start: 20130820
  4. FLUTICASONE PROPIONATE. [Concomitant]
     Active Substance: FLUTICASONE PROPIONATE
     Dosage: 50 MCG /ACT NASAL SUSPENSION; USE 1 SPRAY IN EACH NOSTRIL TWICE DAILY
     Dates: start: 20150409
  5. ZOLPIDEM TARTRATE. [Concomitant]
     Active Substance: ZOLPIDEM TARTRATE
     Dosage: 10 MG, (BEDTIME)
     Dates: start: 20130820
  6. ANDROGEL [Concomitant]
     Active Substance: TESTOSTERONE
     Dosage: 20.25 MG/ACT (1.82%) APPLY 4 PUMP PRESSES ONE TIME-DAILY AS DIRECTED
     Route: 062
  7. ZITHROMAX [Concomitant]
     Active Substance: AZITHROMYCIN DIHYDRATE
     Dosage: 250 MG ORAL TABLET; TAKE 2 TABLETS ON DAY 1 THEN 1 TABLET A DAY FOR 4 DAYS;
     Route: 048
     Dates: start: 20150212
  8. ALPRAZOLAM. [Concomitant]
     Active Substance: ALPRAZOLAM
     Dosage: 1 MG, AS NEEDED (DAILY)
     Dates: start: 20150427
  9. BUPROPION HCL [Concomitant]
     Active Substance: BUPROPION HYDROCHLORIDE
     Dosage: 150 MG, EVERY MORNING
     Route: 048
     Dates: start: 20151228
  10. CLOTRIMAZOLE. [Concomitant]
     Active Substance: CLOTRIMAZOLE
     Dosage: 1% EXTERNAL CREAM; APPLY 2-3 TIMES DAILY TO AFFECTED AREA(S)
     Dates: start: 20151217
  11. FINASTERIDE. [Concomitant]
     Active Substance: FINASTERIDE
     Dosage: 5 MG, 1X/DAY
     Route: 048
     Dates: start: 20160520
  12. LIDOCAINE HCL [Concomitant]
     Active Substance: LIDOCAINE HYDROCHLORIDE
     Dosage: 4 %, UNK
     Dates: start: 20141124
  13. CICLOPIROX. [Concomitant]
     Active Substance: CICLOPIROX
     Dosage: 0.77 %, 2X/DAY
     Dates: start: 20160217
  14. CICLOPIROX OLAMINE. [Concomitant]
     Active Substance: CICLOPIROX OLAMINE
     Dosage: 0.77 %, 2X/DAY (IN THE MORNING AND THE EVENING)
     Dates: start: 20140519
  15. CLOPIDOGREL BISULFATE. [Concomitant]
     Active Substance: CLOPIDOGREL BISULFATE
     Dosage: 75 MG, DAILY
     Route: 048
     Dates: start: 20130820
  16. HYDROCHLOROTHIAZIDE. [Concomitant]
     Active Substance: HYDROCHLOROTHIAZIDE
     Dosage: 25 MG, 1X/DAY
     Route: 048
     Dates: start: 20140805
  17. JUBLIA [Concomitant]
     Active Substance: EFINACONAZOLE
     Dosage: 10 %, UNK
     Dates: start: 20151113
  18. METFORMIN HCL [Concomitant]
     Active Substance: METFORMIN HYDROCHLORIDE
     Dosage: 500 MG, UNK
     Route: 048
     Dates: start: 20131119
  19. PROAIR HFA [Concomitant]
     Active Substance: ALBUTEROL SULFATE
     Dosage: 108 UG, AS NEEDED (INHALE 1 TO 2 PUFFS EVERY4 TO 6 HOURS)
     Dates: start: 20160409
  20. ALFUZOSIN HCL [Concomitant]
     Active Substance: ALFUZOSIN HYDROCHLORIDE
     Dosage: 10 MG, TAKE 1 TABLET DAILY
     Route: 048
     Dates: start: 20130816
  21. ALPRAZOLAM. [Concomitant]
     Active Substance: ALPRAZOLAM
     Dosage: 0.5 MG ORAL TABLET; TAKE 1 TABLET BEDTIME AS NEEDED
     Route: 048
     Dates: start: 20150623
  22. ECONAZOLE NITRATE. [Concomitant]
     Active Substance: ECONAZOLE NITRATE
     Dosage: 1 %, 2X/DAY
     Dates: start: 20141030
  23. IBUPROFEN. [Concomitant]
     Active Substance: IBUPROFEN
     Dosage: 800 MG ORAL TABLET; TAKE 1 TABLET, TWICE A DAILY AS NEEDED
     Route: 048
     Dates: start: 20130822
  24. RANITIDINE HCL [Concomitant]
     Active Substance: RANITIDINE HYDROCHLORIDE
     Dosage: 150 MG, 2X/DAY
     Route: 048
     Dates: start: 20130820

REACTIONS (2)
  - Penile contusion [Unknown]
  - Vein disorder [Unknown]
